FAERS Safety Report 9325793 (Version 2)
Quarter: 2013Q4

REPORT INFORMATION
  Report Type: Report from Study
  Country: FI (occurrence: FI)
  Receive Date: 20130604
  Receipt Date: 20131119
  Transmission Date: 20140711
  Serious: Yes (Hospitalization, Other)
  Sender: FDA-Public Use
  Company Number: FI-ELI_LILLY_AND_COMPANY-FI201303004770

PATIENT
  Sex: Female

DRUGS (9)
  1. TERIPARATIDE [Suspect]
     Indication: OSTEOPOROSIS
     Dosage: 20 UG, QD
     Route: 065
     Dates: start: 20120612, end: 20131108
  2. SERETIDE [Concomitant]
     Indication: ASTHMA
  3. NUELIN [Concomitant]
     Indication: ASTHMA
  4. PANACOD [Concomitant]
     Indication: ANALGESIC THERAPY
  5. GASTRIX [Concomitant]
  6. PREDNISOLONE [Concomitant]
     Indication: ASTHMA
  7. CALCICHEW [Concomitant]
     Indication: SUPPLEMENTATION THERAPY
  8. TELFAST [Concomitant]
     Indication: HYPERSENSITIVITY
  9. SPIRIVA [Concomitant]
     Indication: ASTHMA

REACTIONS (4)
  - Pneumonia aspiration [Unknown]
  - Hernia obstructive [Unknown]
  - Gastrointestinal disorder [Unknown]
  - Abdominal distension [Unknown]
